FAERS Safety Report 8305149-9 (Version None)
Quarter: 2012Q2

REPORT INFORMATION
  Report Type: 
  Country: None (occurrence: None)
  Receive Date: 20120418
  Receipt Date: 20120409
  Transmission Date: 20120825
  Serious: Yes (Hospitalization, Other)
  Sender: FDA-Public Use
  Company Number: 2009EU002227

PATIENT
  Age: 15 Year
  Sex: Female
  Weight: 45 kg

DRUGS (2)
  1. GLEEVEC [Concomitant]
  2. TACROLIMUS [Suspect]
     Indication: DERMATITIS
     Dosage: 0.03 %, PM, TOPICAL
     Route: 061
     Dates: start: 20050228, end: 20080601

REACTIONS (11)
  - BLOOD LACTATE DEHYDROGENASE INCREASED [None]
  - CHRONIC MYELOID LEUKAEMIA [None]
  - ECZEMA [None]
  - ASPARTATE AMINOTRANSFERASE INCREASED [None]
  - ALANINE AMINOTRANSFERASE INCREASED [None]
  - FIBRIN D DIMER INCREASED [None]
  - LYMPHADENOPATHY [None]
  - BLOOD URIC ACID INCREASED [None]
  - IRON DEFICIENCY ANAEMIA [None]
  - ALOPECIA [None]
  - BLOOD PHOSPHORUS INCREASED [None]
